FAERS Safety Report 9646019 (Version 2)
Quarter: 2013Q4

REPORT INFORMATION
  Report Type: Spontaneous
  Country: US (occurrence: US)
  Receive Date: 20131025
  Receipt Date: 20131104
  Transmission Date: 20140711
  Serious: Yes (Hospitalization, Other)
  Sender: FDA-Public Use
  Company Number: US-JNJFOC-20131010223

PATIENT
  Age: 54 Year
  Sex: Male
  Weight: 81.65 kg

DRUGS (6)
  1. XARELTO [Suspect]
     Indication: ANTICOAGULANT THERAPY
     Route: 048
     Dates: start: 20130907, end: 20130920
  2. TREPROSTINIL [Suspect]
     Indication: PULMONARY ARTERIAL HYPERTENSION
     Route: 048
     Dates: start: 20110608
  3. TREPROSTINIL [Suspect]
     Indication: PULMONARY ARTERIAL HYPERTENSION
     Route: 048
     Dates: start: 20130924
  4. ADVAIR [Concomitant]
     Indication: CHRONIC OBSTRUCTIVE PULMONARY DISEASE
     Dosage: 250 - 50 MCG
     Route: 065
     Dates: start: 20120916
  5. TRAMADOL [Concomitant]
     Indication: PAIN
     Route: 065
     Dates: start: 20090727
  6. WARFARIN [Concomitant]
     Indication: ANTICOAGULANT THERAPY
     Route: 065
     Dates: start: 20080213, end: 20130906

REACTIONS (4)
  - Lower gastrointestinal haemorrhage [Unknown]
  - Haemoglobin decreased [Unknown]
  - Portal hypertensive gastropathy [Unknown]
  - Dizziness [Unknown]
